FAERS Safety Report 5906678-5 (Version None)
Quarter: 2008Q3

REPORT INFORMATION
  Report Type: 
  Country: None (occurrence: None)
  Receive Date: 20080930
  Receipt Date: 20080917
  Transmission Date: 20090109
  Serious: Yes (Disabling)
  Sender: FDA-Public Use
  Company Number: GXKR2008GB08904

PATIENT
  Age: 57 Year
  Sex: Female

DRUGS (9)
  1. GABAPENTIN [Suspect]
     Indication: NEURALGIA
     Dosage: 400 MG, QD, ORAL
     Route: 048
  2. ELOXATIN [Suspect]
     Indication: COLON CANCER
     Dosage: 85 MG/M2, BIW, INTRAVENOUS
     Route: 042
  3. FEXOFENADINE HCL [Concomitant]
  4. FLUOROURACIL [Concomitant]
  5. FOLIC ACID [Concomitant]
  6. HRT NOS [Concomitant]
  7. MULTIVITAM PREPARATIONS WITH OR W/O MINERAL (MULTIVITAMIN PREP WITH OR [Concomitant]
  8. PREMIQUE (ESTROGENS CONJUGATED, MEDROXYPROGESTERONE ACETATE) [Concomitant]
  9. VITAMIN B6 [Concomitant]

REACTIONS (9)
  - ARTHRALGIA [None]
  - DEPRESSED MOOD [None]
  - GASTRIC HYPOMOTILITY [None]
  - LHERMITTE'S SIGN [None]
  - NEUROPATHY PERIPHERAL [None]
  - PAIN [None]
  - PAIN IN EXTREMITY [None]
  - PARAESTHESIA [None]
  - PERIPHERAL SENSORY NEUROPATHY [None]
